FAERS Safety Report 5359510-5 (Version None)
Quarter: 2007Q2

REPORT INFORMATION
  Report Type: 
  Country: None (occurrence: None)
  Receive Date: 20070615
  Receipt Date: 20070605
  Transmission Date: 20071010
  Serious: Yes (Other)
  Sender: FDA-Public Use
  Company Number: BE-PFIZER INC-2007047074

PATIENT
  Age: 40 Year
  Sex: Female

DRUGS (4)
  1. DETRUSITOL SR [Suspect]
     Indication: URINARY INCONTINENCE
     Route: 048
  2. FLUOXETINE [Concomitant]
     Route: 048
  3. TRAZODONE HCL [Concomitant]
     Route: 048
  4. TRAMADOL - SLOW RELEASE [Concomitant]
     Route: 048

REACTIONS (3)
  - DRY MOUTH [None]
  - OEDEMA PERIPHERAL [None]
  - WEIGHT INCREASED [None]
